FAERS Safety Report 19691953 (Version 1)
Quarter: 2021Q3

REPORT INFORMATION
  Report Type: Spontaneous
  Country: HR (occurrence: HR)
  Receive Date: 20210812
  Receipt Date: 20210812
  Transmission Date: 20211014
  Serious: Yes (Other)
  Sender: FDA-Public Use
  Company Number: HR-TEVA-2021-HR-1940434

PATIENT
  Age: 14 Year
  Sex: Female

DRUGS (2)
  1. PAROXETIN [Suspect]
     Active Substance: PAROXETINE HYDROCHLORIDE
     Route: 048
  2. ZOLPIDEM [Suspect]
     Active Substance: ZOLPIDEM TARTRATE
     Route: 048

REACTIONS (3)
  - Somnolence [Unknown]
  - Mydriasis [Unknown]
  - Suicide attempt [Unknown]

NARRATIVE: CASE EVENT DATE: 202105
